APPROVED DRUG PRODUCT: CERUBIDINE
Active Ingredient: DAUNORUBICIN HYDROCHLORIDE
Strength: EQ 20MG BASE/VIAL
Dosage Form/Route: INJECTABLE;INJECTION
Application: A064103 | Product #001 | TE Code: AP
Applicant: HIKMA PHARMACEUTICALS USA INC
Approved: Feb 3, 1995 | RLD: No | RS: Yes | Type: RX